FAERS Safety Report 4759773-0 (Version None)
Quarter: 2005Q3

REPORT INFORMATION
  Report Type: 
  Country: None (occurrence: None)
  Receive Date: 20050829
  Receipt Date: 20050518
  Transmission Date: 20060218
  Serious: No
  Sender: FDA-Public Use
  Company Number: S05-USA-02337-01

PATIENT
  Age: 40 Year
  Sex: Female

DRUGS (2)
  1. CAMPRAL [Suspect]
     Indication: ALCOHOLISM
     Dosage: 666 MG TID PO
     Route: 048
     Dates: start: 20050401
  2. COUMADIN [Suspect]
     Indication: ANTICOAGULANT THERAPY
     Dates: start: 20050201, end: 20050511

REACTIONS (1)
  - INTERNATIONAL NORMALISED RATIO INCREASED [None]
